FAERS Safety Report 5056494-4 (Version None)
Quarter: 2006Q3

REPORT INFORMATION
  Report Type: 
  Country: None (occurrence: None)
  Receive Date: 20060720
  Receipt Date: 20060717
  Transmission Date: 20061208
  Serious: Yes (Death, Hospitalization)
  Sender: FDA-Public Use
  Company Number: US-BRISTOL-MYERS SQUIBB COMPANY-13444070

PATIENT
  Age: 60 Year
  Sex: Male
  Weight: 91 kg

DRUGS (3)
  1. DOCETAXEL [Suspect]
     Indication: PANCREATIC CARCINOMA
     Dates: start: 20060626, end: 20060626
  2. ENOXAPARIN SODIUM [Suspect]
     Indication: PANCREATIC CARCINOMA
     Dates: start: 20060703, end: 20060703
  3. IRINOTECAN [Suspect]
     Indication: PANCREATIC CARCINOMA
     Dates: start: 20060626, end: 20060626

REACTIONS (1)
  - NEUTROPENIC INFECTION [None]
